FAERS Safety Report 8113306-X (Version None)
Quarter: 2012Q1

REPORT INFORMATION
  Report Type: 
  Country: None (occurrence: None)
  Receive Date: 20120203
  Receipt Date: 20120126
  Transmission Date: 20120608
  Serious: Yes (Other)
  Sender: FDA-Public Use
  Company Number: PHHY2012JP007377

PATIENT
  Age: 78 Year
  Sex: Male

DRUGS (1)
  1. ZOMETA [Suspect]
     Indication: METASTASES TO BONE
     Dosage: UNK UKN, UNK
     Dates: start: 20120120

REACTIONS (5)
  - HYPOPHOSPHATAEMIA [None]
  - CONVULSION [None]
  - HYPOCALCAEMIA [None]
  - BLOOD CALCIUM DECREASED [None]
  - HYPOAESTHESIA [None]
